FAERS Safety Report 4748985-8 (Version None)
Quarter: 2005Q3

REPORT INFORMATION
  Report Type: 
  Country: None (occurrence: None)
  Receive Date: 20050819
  Receipt Date: 20050419
  Transmission Date: 20060218
  Serious: Yes (Hospitalization, Disabling, Other)
  Sender: FDA-Public Use
  Company Number: US-MERCK-0504USA03717

PATIENT
  Age: 52 Year
  Sex: Male

DRUGS (8)
  1. VIOXX [Suspect]
     Indication: MUSCULOSKELETAL DISCOMFORT
     Route: 048
     Dates: start: 19990726, end: 20041011
  2. VIOXX [Suspect]
     Indication: BACK PAIN
     Route: 048
     Dates: start: 19990726, end: 20041011
  3. NORVASC [Concomitant]
     Route: 048
     Dates: start: 19950101
  4. ASPIRIN [Concomitant]
     Route: 048
     Dates: start: 19950101
  5. LIPITOR [Concomitant]
     Indication: BLOOD CHOLESTEROL INCREASED
     Route: 048
     Dates: start: 19950101
  6. WELLBUTRIN [Concomitant]
     Indication: DEPRESSION
     Route: 048
  7. WELLBUTRIN [Concomitant]
     Indication: EX-SMOKER
     Route: 048
  8. PLAVIX [Suspect]
     Route: 048
     Dates: start: 20020327

REACTIONS (12)
  - ANGINA UNSTABLE [None]
  - ANXIETY [None]
  - ARTHROPATHY [None]
  - CHEST PAIN [None]
  - CORONARY ARTERY DISEASE [None]
  - DIABETES MELLITUS INADEQUATE CONTROL [None]
  - DIABETES MELLITUS NON-INSULIN-DEPENDENT [None]
  - HERNIA [None]
  - HYPERTENSION [None]
  - MUSCULOSKELETAL DISCOMFORT [None]
  - MYOCARDIAL INFARCTION [None]
  - WOUND HAEMORRHAGE [None]
